FAERS Safety Report 21981135 (Version 1)
Quarter: 2023Q1

REPORT INFORMATION
  Report Type: Report from Study
  Country: US (occurrence: US)
  Receive Date: 20230211
  Receipt Date: 20230211
  Transmission Date: 20230417
  Serious: No
  Sender: FDA-Public Use
  Company Number: US-002147023-NVSC2023US027165

PATIENT
  Sex: Female

DRUGS (2)
  1. METHOTREXATE [Suspect]
     Active Substance: METHOTREXATE
     Indication: Psoriasis
     Dosage: UNK
     Route: 065
     Dates: end: 2021
  2. CYCLOSPORINE [Suspect]
     Active Substance: CYCLOSPORINE
     Indication: Psoriasis
     Dosage: 100 MG
     Route: 048

REACTIONS (4)
  - Pustular psoriasis [Unknown]
  - Rash [Recovered/Resolved]
  - Psoriasis [Recovered/Resolved]
  - Drug ineffective [Unknown]
